FAERS Safety Report 11257645 (Version 4)
Quarter: 2016Q2

REPORT INFORMATION
  Report Type: Spontaneous
  Country: CA (occurrence: CA)
  Receive Date: 20150710
  Receipt Date: 20160524
  Transmission Date: 20160815
  Serious: Yes (Other)
  Sender: FDA-Public Use
  Company Number: CA-ROCHE-1605988

PATIENT
  Age: 38 Year
  Sex: Female

DRUGS (5)
  1. XOLAIR [Suspect]
     Active Substance: OMALIZUMAB
     Indication: CHRONIC SPONTANEOUS URTICARIA
     Dosage: POWDER AND SOLVENT FOR SOLUTION FOR INJECTION
     Route: 058
     Dates: start: 20140919
  2. XOLAIR [Suspect]
     Active Substance: OMALIZUMAB
     Dosage: POWDER AND SOLVENT FOR SOLUTION FOR INJECTION
     Route: 058
     Dates: start: 20150501
  3. XOLAIR [Suspect]
     Active Substance: OMALIZUMAB
     Dosage: POWDER AND SOLVENT FOR SOLUTION FOR INJECTION
     Route: 058
     Dates: start: 20160513
  4. XOLAIR [Suspect]
     Active Substance: OMALIZUMAB
     Dosage: POWDER AND SOLVENT FOR SOLUTION FOR INJECTION
     Route: 058
     Dates: start: 20141114
  5. CEFZIL [Concomitant]
     Active Substance: CEFPROZIL

REACTIONS (24)
  - Rhinorrhoea [Unknown]
  - Injection site hypoaesthesia [Unknown]
  - Cough [Unknown]
  - Tongue spasm [Recovered/Resolved]
  - Blood pressure systolic increased [Unknown]
  - Pruritus [Unknown]
  - Diarrhoea [Unknown]
  - Bronchitis [Unknown]
  - Haemoptysis [Unknown]
  - Nasal congestion [Unknown]
  - Asthenia [Unknown]
  - Sinus headache [Unknown]
  - Fatigue [Unknown]
  - Vomiting [Unknown]
  - Abdominal pain upper [Unknown]
  - Oropharyngeal pain [Unknown]
  - Feeling hot [Unknown]
  - Rash [Unknown]
  - Weight decreased [Unknown]
  - Malaise [Unknown]
  - Productive cough [Unknown]
  - Rash erythematous [Recovering/Resolving]
  - Increased upper airway secretion [Unknown]
  - Respiratory rate decreased [Unknown]

NARRATIVE: CASE EVENT DATE: 20140919
